FAERS Safety Report 5266013-5 (Version None)
Quarter: 2007Q1

REPORT INFORMATION
  Report Type: 
  Country: None (occurrence: None)
  Receive Date: 20070315
  Receipt Date: 20060927
  Transmission Date: 20070707
  Serious: Yes (Other)
  Sender: FDA-Public Use
  Company Number: US-JNJFOC-20070302430

PATIENT
  Sex: Male

DRUGS (1)
  1. VIADUR [Suspect]
     Indication: PROSTATE CANCER
     Route: 059
     Dates: start: 20041101

REACTIONS (1)
  - BREAST CANCER [None]
